FAERS Safety Report 9323653 (Version 1)
Quarter: 2013Q2

REPORT INFORMATION
  Report Type: Report from Study
  Country: US (occurrence: US)
  Receive Date: 20130603
  Receipt Date: 20130603
  Transmission Date: 20140414
  Serious: Yes (Hospitalization)
  Sender: FDA-Public Use
  Company Number: PHEH2013US011868

PATIENT
  Sex: Male

DRUGS (1)
  1. MYFORTIC [Suspect]
     Dosage: 720 MG, BID
     Route: 048

REACTIONS (2)
  - Blood folate increased [Unknown]
  - Local swelling [Unknown]
